FAERS Safety Report 12899582 (Version 1)
Quarter: 2016Q4

REPORT INFORMATION
  Report Type: Spontaneous
  Country: US (occurrence: US)
  Receive Date: 20161030
  Receipt Date: 20161030
  Transmission Date: 20170207
  Serious: No
  Sender: FDA-Public Use
  Company Number: None

PATIENT
  Age: 49 Year
  Sex: Male
  Weight: 83.7 kg

DRUGS (6)
  1. MULTIVITAMIN [Concomitant]
     Active Substance: VITAMINS
  2. OMEPRAZOLE. [Concomitant]
     Active Substance: OMEPRAZOLE
  3. PREDNISONE. [Suspect]
     Active Substance: PREDNISONE
     Indication: LABYRINTHITIS
     Dosage: QUANTITY:60 TABLET(S); 3 TIMES A DAY; ORAL?
     Route: 048
     Dates: start: 20161026
  4. OXYPROSIN [Concomitant]
  5. REMICADE [Concomitant]
     Active Substance: INFLIXIMAB
  6. VITAMIN D [Concomitant]
     Active Substance: CHOLECALCIFEROL

REACTIONS (1)
  - Poor quality sleep [None]

NARRATIVE: CASE EVENT DATE: 20161030
